FAERS Safety Report 4772397-4 (Version None)
Quarter: 2005Q3

REPORT INFORMATION
  Report Type: 
  Country: None (occurrence: None)
  Receive Date: 20050919
  Receipt Date: 20050502
  Transmission Date: 20060218
  Serious: No
  Sender: FDA-Public Use
  Company Number: US-BRISTOL-MYERS SQUIBB COMPANY-12953337

PATIENT
  Sex: Male
  Weight: 100 kg

DRUGS (1)
  1. KENALOG-40 [Suspect]
     Indication: BACK PAIN

REACTIONS (4)
  - ADRENAL SUPPRESSION [None]
  - DRUG WITHDRAWAL SYNDROME [None]
  - DYSPNOEA [None]
  - FATIGUE [None]
